FAERS Safety Report 5232574-5 (Version None)
Quarter: 2007Q1

REPORT INFORMATION
  Report Type: 
  Country: None (occurrence: None)
  Receive Date: 20070207
  Receipt Date: 20070131
  Transmission Date: 20070707
  Serious: Yes (Death)
  Sender: FDA-Public Use
  Company Number: US-AVENTIS-200611973US

PATIENT
  Age: 70 Year
  Sex: Male

DRUGS (14)
  1. LANTUS [Suspect]
     Route: 051
     Dates: start: 20060211
  2. OPTICLIK (INSULIN INJECTION PEN) [Suspect]
     Route: 051
     Dates: start: 20060211
  3. TORSEMIDE [Concomitant]
     Dosage: DOSE: UNKNOWN
  4. THEOPHYLLINE [Concomitant]
     Dosage: DOSE: UNKNOWN
  5. COREG [Concomitant]
     Dosage: DOSE: UNKNOWN
  6. PREDNISONE [Concomitant]
     Dosage: DOSE: UNKNOWN
  7. ALTACE [Concomitant]
     Dosage: DOSE: UNKNOWN
  8. ZOLOFT [Concomitant]
     Dosage: DOSE: UNKNOWN
  9. VYTORIN [Concomitant]
     Dosage: DOSE: UNKNOWN
  10. SINGULAIR [Concomitant]
     Dosage: DOSE: UNKNOWN
  11. OXYGEN [Concomitant]
     Dosage: DOSE: UNKNOWN
  12. ADVAIR DISKUS 100/50 [Concomitant]
     Dosage: DOSE: UNKNOWN
  13. SPIRIVA [Concomitant]
     Dosage: DOSE: UNKNOWN
  14. XOPENEX [Concomitant]
     Dosage: DOSE: UNKNOWN

REACTIONS (2)
  - DEATH [None]
  - INJECTION SITE EXTRAVASATION [None]
